FAERS Safety Report 9697935 (Version 1)
Quarter: 2013Q4

REPORT INFORMATION
  Report Type: Spontaneous
  Country: IT (occurrence: None)
  Receive Date: 20131118
  Receipt Date: 20131118
  Transmission Date: 20140711
  Serious: Yes (Hospitalization)
  Sender: FDA-Public Use
  Company Number: 2013P1020902

PATIENT
  Sex: 0

DRUGS (2)
  1. AMLODIPINE [Suspect]
  2. SIMVASTATIN [Suspect]
     Dosage: 40 MG; QD;

REACTIONS (2)
  - Drug interaction [None]
  - Myopathy [None]
